FAERS Safety Report 13988867 (Version 1)
Quarter: 2017Q3

REPORT INFORMATION
  Report Type: Spontaneous
  Country: CA (occurrence: CA)
  Receive Date: 20170919
  Receipt Date: 20170919
  Transmission Date: 20171128
  Serious: Yes (Hospitalization, Disabling)
  Sender: FDA-Public Use
  Company Number: CA-TEVA-807431ACC

PATIENT
  Age: 10 Year
  Weight: 23 kg

DRUGS (8)
  1. VINCRISTINE SULFATE. [Suspect]
     Active Substance: VINCRISTINE SULFATE
     Indication: ACUTE LYMPHOCYTIC LEUKAEMIA
     Route: 042
  2. HYDROCORTISONE. [Concomitant]
     Active Substance: HYDROCORTISONE
  3. DOXORUBICIN HYDROCHLORIDE INJECTION [Concomitant]
     Active Substance: DOXORUBICIN HYDROCHLORIDE
  4. CYTARABINE INJECTION [Concomitant]
     Active Substance: CYTARABINE
  5. METHOTREXATE. [Concomitant]
     Active Substance: METHOTREXATE
  6. MERCAPTOPURINE. [Suspect]
     Active Substance: MERCAPTOPURINE
     Route: 065
  7. ASPARAGINASE (E.COLI) [Concomitant]
     Active Substance: ASPARAGINASE
  8. PEGYLATED ASPARAGINASE [Concomitant]
     Active Substance: PEGASPARGASE

REACTIONS (7)
  - Neuropathy peripheral [Recovered/Resolved]
  - Muscle contracture [Recovered/Resolved]
  - Amyotrophy [Recovered/Resolved]
  - Arthralgia [Recovered/Resolved]
  - Paraesthesia [Recovered/Resolved]
  - Gait disturbance [Recovered/Resolved]
  - Back pain [Recovered/Resolved]
